FAERS Safety Report 9676464 (Version 3)
Quarter: 2014Q2

REPORT INFORMATION
  Report Type: Spontaneous
  Country: US (occurrence: US)
  Receive Date: 20131107
  Receipt Date: 20140522
  Transmission Date: 20141212
  Serious: No
  Sender: FDA-Public Use
  Company Number: US-PFIZER INC-2013314105

PATIENT
  Age: 62 Year
  Sex: Female

DRUGS (4)
  1. ZOLOFT [Suspect]
     Dosage: UNK
  2. XANAX [Suspect]
     Dosage: UNK
  3. VALIUM [Suspect]
     Dosage: UNK
  4. LEXAPRO [Suspect]
     Dosage: UNK

REACTIONS (2)
  - Drug hypersensitivity [Unknown]
  - Dermatitis contact [Unknown]
